FAERS Safety Report 5347517-3 (Version None)
Quarter: 2007Q2

REPORT INFORMATION
  Report Type: 
  Country: None (occurrence: None)
  Receive Date: 20070606
  Receipt Date: 20070525
  Transmission Date: 20071010
  Serious: Yes (Hospitalization)
  Sender: FDA-Public Use
  Company Number: JP-NOVOPROD-238288

PATIENT
  Age: 55 Year
  Sex: Female

DRUGS (8)
  1. NOVORAPID CHU [Suspect]
     Indication: DIABETES MELLITUS
     Dosage: 16 IU, UNK
     Route: 058
     Dates: start: 20040427, end: 20040723
  2. LANTUS [Concomitant]
     Indication: DIABETES MELLITUS
     Dosage: 12 IU, UNK
     Route: 058
     Dates: start: 20040419, end: 20040726
  3. MEVALOTIN [Concomitant]
     Indication: HYPERLIPIDAEMIA
     Dosage: 20 MG, UNK
     Route: 048
     Dates: start: 20000426, end: 20040713
  4. KINEDAK [Concomitant]
     Indication: DIABETIC NEUROPATHY
     Dosage: 450 MG, UNK
     Route: 048
     Dates: start: 20040413, end: 20040713
  5. CYANOCOBALAMIN [Concomitant]
     Indication: DIABETIC NEUROPATHY
     Dates: start: 20000329, end: 20040723
  6. LENDORMIN [Concomitant]
     Indication: INSOMNIA
     Dosage: .25 MG, UNK
     Route: 048
     Dates: start: 19970716, end: 20040729
  7. ALOSENN [Concomitant]
     Indication: CONSTIPATION
     Dosage: 2 G, UNK
     Route: 048
     Dates: start: 19970716, end: 20040729
  8. HUMALOG [Concomitant]
     Indication: DIABETES MELLITUS
     Dosage: 16 IU, UNK
     Route: 058
     Dates: start: 20040723, end: 20040726

REACTIONS (1)
  - HEPATIC FUNCTION ABNORMAL [None]
